FAERS Safety Report 24966975 (Version 4)
Quarter: 2025Q2

REPORT INFORMATION
  Report Type: Spontaneous
  Country: US (occurrence: US)
  Receive Date: 20250213
  Receipt Date: 20250403
  Transmission Date: 20250717
  Serious: No
  Sender: ALEXION PHARMACEUTICALS
  Company Number: US-AstraZeneca-CH-00806170AP

PATIENT

DRUGS (2)
  1. AIRSUPRA [Suspect]
     Active Substance: ALBUTEROL SULFATE\BUDESONIDE
     Route: 065
  2. PRILOSEC [Suspect]
     Active Substance: OMEPRAZOLE MAGNESIUM
     Route: 065

REACTIONS (6)
  - Dysphonia [Unknown]
  - Gastroenteritis [Recovered/Resolved]
  - Abdominal distension [Unknown]
  - Blood urine present [Recovered/Resolved]
  - Intentional product misuse [Unknown]
  - Device malfunction [Unknown]
